FAERS Safety Report 12673213 (Version 1)
Quarter: 2016Q3

REPORT INFORMATION
  Report Type: Spontaneous
  Country: CA (occurrence: CA)
  Receive Date: 20160822
  Receipt Date: 20160822
  Transmission Date: 20161109
  Serious: Yes (Other)
  Sender: FDA-Public Use
  Company Number: CA-ORION CORPORATION ORION PHARMA-TREX2016-0571

PATIENT
  Age: 60 Year
  Sex: Female

DRUGS (3)
  1. METHOTREXATE SODIUM. [Suspect]
     Active Substance: METHOTREXATE SODIUM
     Indication: RHEUMATOID ARTHRITIS
     Route: 065
     Dates: start: 2013, end: 2014
  2. HYDROXYCHLOROQUINE [Suspect]
     Active Substance: HYDROXYCHLOROQUINE
     Route: 065
  3. LEFLUNOMIDE. [Concomitant]
     Active Substance: LEFLUNOMIDE
     Route: 065

REACTIONS (6)
  - Tongue injury [None]
  - Eye disorder [None]
  - Rheumatoid arthritis [Unknown]
  - General physical health deterioration [Unknown]
  - Lower respiratory tract infection [None]
  - Diarrhoea [None]

NARRATIVE: CASE EVENT DATE: 2013
